FAERS Safety Report 7914821-1 (Version None)
Quarter: 2011Q4

REPORT INFORMATION
  Report Type: 
  Country: None (occurrence: None)
  Receive Date: 20111115
  Receipt Date: 20111107
  Transmission Date: 20120403
  Serious: Yes (Hospitalization, Other)
  Sender: FDA-Public Use
  Company Number: BR-US-EMD SERONO, INC.-7090604

PATIENT
  Sex: Female

DRUGS (5)
  1. ANTI-INFLAMMATORY [Concomitant]
  2. DIAZEPAM [Concomitant]
  3. LIORESAL [Concomitant]
  4. PROPRANOLOL [Suspect]
     Indication: PRODUCT USED FOR UNKNOWN INDICATION
  5. REBIF [Suspect]
     Indication: MULTIPLE SCLEROSIS
     Dates: start: 20081001

REACTIONS (5)
  - RAYNAUD'S PHENOMENON [None]
  - INTERVERTEBRAL DISC PROTRUSION [None]
  - MULTIPLE SCLEROSIS RELAPSE [None]
  - HYPOAESTHESIA [None]
  - BURNING SENSATION [None]
